FAERS Safety Report 10527945 (Version 1)
Quarter: 2014Q4

REPORT INFORMATION
  Report Type: Spontaneous
  Country: US (occurrence: None)
  Receive Date: 20141017
  Receipt Date: 20141017
  Transmission Date: 20150528
  Serious: Yes (Other)
  Sender: FDA-Public Use
  Company Number: None

PATIENT
  Age: 50 Year
  Sex: Female
  Weight: 95.26 kg

DRUGS (6)
  1. VITAMIN B12 [Suspect]
     Active Substance: CYANOCOBALAMIN
     Indication: WEIGHT DECREASED
     Dates: start: 20140604
  2. ADVIL [Concomitant]
     Active Substance: IBUPROFEN
  3. BENICARE [Concomitant]
  4. PHENTERMINE [Concomitant]
     Active Substance: PHENTERMINE
  5. TYLENOL [Concomitant]
     Active Substance: ACETAMINOPHEN
  6. TRILIPIX [Concomitant]
     Active Substance: FENOFIBRIC ACID

REACTIONS (6)
  - Injection site pruritus [None]
  - Needle issue [None]
  - Injection site nodule [None]
  - Injection site infection [None]
  - Rash [None]
  - Injection site swelling [None]

NARRATIVE: CASE EVENT DATE: 20140711
